FAERS Safety Report 14781055 (Version 2)
Quarter: 2018Q2

REPORT INFORMATION
  Report Type: Spontaneous
  Country: DE (occurrence: DE)
  Receive Date: 20180419
  Receipt Date: 20180420
  Transmission Date: 20180711
  Serious: Yes (Other)
  Sender: FDA-Public Use
  Company Number: DE-BIOMARINAP-DE-2018-117879

PATIENT
  Sex: Female

DRUGS (1)
  1. KUVAN [Suspect]
     Active Substance: SAPROPTERIN DIHYDROCHLORIDE
     Indication: TETRAHYDROBIOPTERIN DEFICIENCY
     Route: 064

REACTIONS (8)
  - Septum pellucidum agenesis [Unknown]
  - Hemiplegia [Unknown]
  - Premature baby [Unknown]
  - Cerebral palsy [Unknown]
  - Neonatal respiratory distress syndrome [Unknown]
  - Schizencephaly [Unknown]
  - Atrial septal defect [Unknown]
  - Hemiparesis [Unknown]
